FAERS Safety Report 7376602-X (Version None)
Quarter: 2011Q1

REPORT INFORMATION
  Report Type: 
  Country: None (occurrence: None)
  Receive Date: 20110325
  Receipt Date: 20110322
  Transmission Date: 20110831
  Serious: Yes (Other)
  Sender: FDA-Public Use
  Company Number: SE-PFIZER INC-2011043957

PATIENT
  Age: 33 Year
  Sex: Female

DRUGS (3)
  1. BRICANYL [Concomitant]
     Indication: ASTHMA
     Dosage: 0.5 MG, MONTHLY
  2. TOVIAZ [Suspect]
     Indication: HYPERTONIC BLADDER
     Dosage: 4 MG, 1X/DAY
     Route: 048
     Dates: start: 20110222, end: 20110225
  3. POTASSIUM CHLORIDE [Concomitant]
     Indication: HYPOKALAEMIA
     Dosage: 3000 MG, 1X/DAY
     Route: 048
     Dates: start: 20101001

REACTIONS (1)
  - HYPOKALAEMIA [None]
